FAERS Safety Report 25277655 (Version 1)
Quarter: 2025Q2

REPORT INFORMATION
  Report Type: Spontaneous
  Country: CN (occurrence: CN)
  Receive Date: 20250507
  Receipt Date: 20250507
  Transmission Date: 20250717
  Serious: Yes (Hospitalization)
  Sender: IPCA
  Company Number: CN-IPCA LABORATORIES LIMITED-IPC-2025-CN-001198

PATIENT

DRUGS (1)
  1. WARFARIN SODIUM [Suspect]
     Active Substance: WARFARIN SODIUM
     Indication: Atrial fibrillation
     Route: 065

REACTIONS (1)
  - Protein induced by vitamin K absence or antagonist II increased [Recovering/Resolving]

NARRATIVE: CASE EVENT DATE: 20241011
